FAERS Safety Report 24962694 (Version 1)
Quarter: 2025Q1

REPORT INFORMATION
  Report Type: Other
  Country: CN (occurrence: CN)
  Receive Date: 20250212
  Receipt Date: 20250212
  Transmission Date: 20250409
  Serious: Yes (Life-Threatening, Other)
  Sender: JIANGSU HANSOH PHARMACEUTICAL
  Company Number: CN-Jiangsu Hansoh Pharmaceutical Co., Ltd-2171055

PATIENT
  Age: 68 Year
  Sex: Female
  Weight: 72.5 kg

DRUGS (3)
  1. GEMCITABINE HYDROCHLORIDE [Suspect]
     Active Substance: GEMCITABINE HYDROCHLORIDE
     Indication: Transitional cell carcinoma recurrent
     Dates: start: 20231107
  2. CISPLATIN [Suspect]
     Active Substance: CISPLATIN
     Dates: start: 20231107
  3. TISLELIZUMAB [Suspect]
     Active Substance: TISLELIZUMAB
     Dates: start: 20231107

REACTIONS (4)
  - Hyponatraemia [Recovering/Resolving]
  - Off label use [Unknown]
  - Myelosuppression [Unknown]
  - Renal salt-wasting syndrome [Recovering/Resolving]

NARRATIVE: CASE EVENT DATE: 20231107
